FAERS Safety Report 19192371 (Version 1)
Quarter: 2021Q2

REPORT INFORMATION
  Report Type: Report from Study
  Country: None (occurrence: EE)
  Receive Date: 20210429
  Receipt Date: 20210429
  Transmission Date: 20210717
  Serious: Yes (Death, Hospitalization)
  Sender: FDA-Public Use
  Company Number: EE-ABBVIE-21K-221-3879970-00

PATIENT
  Age: 79 Year
  Sex: Male

DRUGS (5)
  1. CEFUROXIN [Concomitant]
     Active Substance: CEFUROXIME
     Indication: COVID-19 PNEUMONIA
     Route: 042
     Dates: start: 20210329, end: 20210405
  2. DUODOPA [Suspect]
     Active Substance: CARBIDOPA\LEVODOPA
  3. DEXAMETASON [Concomitant]
     Active Substance: DEXAMETHASONE
     Indication: COVID-19 PNEUMONIA
     Route: 048
     Dates: start: 20210329, end: 20210418
  4. DUODOPA [Suspect]
     Active Substance: CARBIDOPA\LEVODOPA
     Indication: PARKINSON^S DISEASE
     Dosage: MORNING 10 ML CONTINUOUS: 3.5 ML/H EXTRA 2 ML
     Route: 050
     Dates: start: 20170627, end: 20210323
  5. CLEXANE [Concomitant]
     Active Substance: ENOXAPARIN SODIUM
     Indication: COVID-19 PNEUMONIA
     Route: 058
     Dates: start: 20210329, end: 20210426

REACTIONS (3)
  - Device dislocation [Unknown]
  - COVID-19 pneumonia [Fatal]
  - Hospitalisation [Fatal]

NARRATIVE: CASE EVENT DATE: 20210323
